FAERS Safety Report 6815693-9 (Version None)
Quarter: 2010Q3

REPORT INFORMATION
  Report Type: 
  Country: None (occurrence: None)
  Receive Date: 20100702
  Receipt Date: 20100625
  Transmission Date: 20110219
  Serious: Yes (Other)
  Sender: FDA-Public Use
  Company Number: US-AMGEN-QUU420674

PATIENT
  Sex: Female

DRUGS (3)
  1. NPLATE [Suspect]
     Indication: IDIOPATHIC THROMBOCYTOPENIC PURPURA
     Dates: start: 20090128, end: 20100416
  2. CORTICOSTEROIDS [Concomitant]
     Dates: start: 20080521
  3. WINRHO [Concomitant]
     Dates: start: 20080614

REACTIONS (1)
  - THERAPEUTIC RESPONSE DECREASED [None]
